FAERS Safety Report 15067768 (Version 1)
Quarter: 2018Q2

REPORT INFORMATION
  Report Type: Spontaneous
  Country: US (occurrence: US)
  Receive Date: 20180626
  Receipt Date: 20180626
  Transmission Date: 20180711
  Serious: No
  Sender: FDA-Public Use
  Company Number: US-VIFOR (INTERNATIONAL) INC.-VIT-2018-06145

PATIENT
  Age: 72 Year
  Sex: Female

DRUGS (19)
  1. PROPYLENE GLYCOL [Concomitant]
     Active Substance: PROPYLENE GLYCOL
  2. GABAPENTIN. [Concomitant]
     Active Substance: GABAPENTIN
  3. GLUCAGEN HYPOKIT [Concomitant]
     Active Substance: GLUCAGON HYDROCHLORIDE
  4. INSTA-GLUCOSE [Concomitant]
     Active Substance: DEXTROSE
  5. SYMBICORT [Concomitant]
     Active Substance: BUDESONIDE\FORMOTEROL FUMARATE DIHYDRATE
  6. ENEMA (SODIUM PHOSPHATE, DIBASIC\SODIUM PHOSPHATE, MONOBASIC) [Concomitant]
     Active Substance: SODIUM PHOSPHATE, DIBASIC\SODIUM PHOSPHATE, MONOBASIC
  7. LOVASTATIN. [Concomitant]
     Active Substance: LOVASTATIN
  8. METOPROLOL TARTRATE. [Concomitant]
     Active Substance: METOPROLOL TARTRATE
  9. MAGNESIUM HYDROXIDE. [Concomitant]
     Active Substance: MAGNESIUM HYDROXIDE
  10. COLECALCIFEROL [Concomitant]
     Active Substance: CHOLECALCIFEROL
  11. ESCITALOPRAM OXALATE. [Concomitant]
     Active Substance: ESCITALOPRAM OXALATE
  12. FERROUS GLUCONATE [Concomitant]
     Active Substance: FERROUS GLUCONATE
  13. VIRT-CAPS [Concomitant]
     Active Substance: ASCORBIC ACID\BIOTIN\CALCIUM PANTOTHENATE\CYANOCOBALAMIN\FOLIC ACID\NIACINAMIDE\PYRIDOXINE HYDROCHLORIDE\RIBOFLAVIN\THIAMINE MONONITRATE
  14. VENTOLIN HFA [Concomitant]
     Active Substance: ALBUTEROL SULFATE
  15. BISAC-EVAC [Concomitant]
     Active Substance: BISACODYL
  16. MAG64 [Concomitant]
  17. VELTASSA [Suspect]
     Active Substance: PATIROMER
     Indication: HYPERKALAEMIA
     Route: 048
     Dates: start: 20180601
  18. PARACETAMOL [Concomitant]
     Active Substance: ACETAMINOPHEN
  19. ACETYLSALICYLIC ACID [Concomitant]
     Active Substance: ASPIRIN

REACTIONS (3)
  - Asthenia [Unknown]
  - Somnolence [Unknown]
  - Feeling abnormal [Unknown]

NARRATIVE: CASE EVENT DATE: 201806
